FAERS Safety Report 4397962-8 (Version None)
Quarter: 2004Q3

REPORT INFORMATION
  Report Type: 
  Country: None (occurrence: None)
  Receive Date: 20040713
  Receipt Date: 20040628
  Transmission Date: 20050211
  Serious: No
  Sender: FDA-Public Use
  Company Number: WAES 00021230

PATIENT
  Age: 58 Year
  Sex: Female

DRUGS (4)
  1. VIOXX [Suspect]
     Indication: OSTEOARTHRITIS
     Dosage: PO
     Route: 048
     Dates: start: 19991001, end: 20000207
  2. PREMPRO [Concomitant]
  3. RELAFEN [Concomitant]
  4. SYNTHROID [Concomitant]

REACTIONS (1)
  - ALOPECIA [None]
